FAERS Safety Report 8842260 (Version 1)
Quarter: 2012Q4

REPORT INFORMATION
  Report Type: Spontaneous
  Country: US (occurrence: None)
  Receive Date: 20121015
  Receipt Date: 20121015
  Transmission Date: 20130627
  Serious: Yes (Life-Threatening, Disabling, Other)
  Sender: FDA-Public Use
  Company Number: None

PATIENT
  Age: 29 Year
  Sex: Female
  Weight: 68.04 kg

DRUGS (1)
  1. MIRENA IUD [Suspect]
     Indication: BIRTH CONTROL
     Dates: start: 20060301, end: 20070301

REACTIONS (8)
  - Abdominal pain [None]
  - Device dislocation [None]
  - Transient ischaemic attack [None]
  - VIIth nerve paralysis [None]
  - Autoimmune disorder [None]
  - Infertility [None]
  - Soft tissue disorder [None]
  - Swelling [None]
